FAERS Safety Report 4349330-2 (Version None)
Quarter: 2004Q2

REPORT INFORMATION
  Report Type: 
  Country: None (occurrence: None)
  Receive Date: 20040426
  Receipt Date: 20040416
  Transmission Date: 20050107
  Serious: Yes (Hospitalization)
  Sender: FDA-Public Use
  Company Number: 04P-056-0247223-00

PATIENT
  Age: 69 Year
  Sex: Male
  Weight: 73 kg

DRUGS (7)
  1. FENOFIBRATE [Suspect]
     Indication: HYPERCHOLESTEROLAEMIA
     Dosage: 200 MG, 1 IN 1 D, ORAL
     Route: 048
     Dates: start: 20001213
  2. SPAGLUMIC ACID [Concomitant]
  3. INDOMETHACIN [Concomitant]
  4. LATANOPROST [Concomitant]
  5. CLONAZEPAM [Concomitant]
  6. CHONDROITIN SULFATE SODIUM [Concomitant]
  7. DORZOLAMIDE HYDROCHLORIDE [Concomitant]

REACTIONS (13)
  - BLOOD PHOSPHORUS DECREASED [None]
  - ERECTILE DYSFUNCTION [None]
  - HYPERPARATHYROIDISM [None]
  - MULTIPLE MYELOMA [None]
  - NEPHRITIS INTERSTITIAL [None]
  - NEPHROCALCINOSIS [None]
  - PRURITUS [None]
  - PRURITUS GENERALISED [None]
  - RENAL FAILURE CHRONIC [None]
  - SALIVARY GLAND DISORDER [None]
  - SARCOIDOSIS [None]
  - SIALOADENITIS [None]
  - SJOGREN'S SYNDROME [None]
